FAERS Safety Report 15067085 (Version 3)
Quarter: 2018Q4

REPORT INFORMATION
  Report Type: Spontaneous
  Country: JP (occurrence: JP)
  Receive Date: 20180626
  Receipt Date: 20181002
  Transmission Date: 20190204
  Serious: Yes (Disabling, Other)
  Sender: FDA-Public Use
  Company Number: JP-GLAXOSMITHKLINE-JP2018JPN110343

PATIENT
  Age: 57 Year
  Sex: Male

DRUGS (16)
  1. MYORELARK [Concomitant]
     Active Substance: EPERISONE HYDROCHLORIDE
     Dosage: 150 MG, 1D
  2. FEXOFENADINE HYDROCHLORIDE TABLETS [Concomitant]
     Active Substance: FEXOFENADINE HYDROCHLORIDE
     Dosage: 60 MG, BID (AFTER BREAKFAST, AFTER DINNER)
  3. GLYCERIN. [Concomitant]
     Active Substance: GLYCERIN
     Indication: CONSTIPATION
     Dosage: UNK UNK, PRN
  4. BETANIS TABLETS [Concomitant]
     Dosage: 50 MG, 1D
  5. CARBOCISTEINE TABLETS [Concomitant]
     Active Substance: CARBOCYSTEINE
     Dosage: 1500 MG, 1D
  6. ASTOMIN TABLETS [Concomitant]
     Dosage: 20 MG, TID (AFTER EACH MEAL)
  7. LANSOPRAZOLE-OD TABLETS [Concomitant]
     Dosage: 15 MG, QD (AFTER BREAKFAST)
  8. MAGMITT TABLET [Concomitant]
     Dosage: 990 MG, 1D
  9. LOXOPROFEN SODIUM HYDRATE TABLET [Concomitant]
     Dosage: 180 MG, 1D
  10. URITOS OD [Concomitant]
     Dosage: 0.1 MG, 1D
  11. MONTELUKAST SODIUM TABLET [Concomitant]
     Active Substance: MONTELUKAST SODIUM
     Dosage: 10 MG, QD (AFTER DINNER)
  12. RELVAR ELLIPTA [Suspect]
     Active Substance: FLUTICASONE FUROATE\VILANTEROL TRIFENATATE
     Indication: ASTHMA
     Dosage: 100 ?G, QD
     Route: 055
  13. METHYCOBAL TABLET [Concomitant]
     Dosage: 1500 ?G, 1D
  14. ADENOSINE TRIPHOSPHATE [Concomitant]
     Active Substance: ADENOSINE TRIPHOSPHATE
     Dosage: 60 MG, 1D
  15. TELMISARTAN. [Concomitant]
     Active Substance: TELMISARTAN
     Dosage: 40 MG, 1D
  16. EQUA [Concomitant]
     Active Substance: VILDAGLIPTIN
     Dosage: 50 MG, BID (AFTER BREAKFAST, AFTER DINNER)

REACTIONS (2)
  - Dysgeusia [Unknown]
  - Tongue paralysis [Recovered/Resolved]

NARRATIVE: CASE EVENT DATE: 201806
